FAERS Safety Report 6204076-0 (Version None)
Quarter: 2009Q2

REPORT INFORMATION
  Report Type: 
  Country: None (occurrence: None)
  Receive Date: 20090527
  Receipt Date: 20090519
  Transmission Date: 20091009
  Serious: Yes (Hospitalization)
  Sender: FDA-Public Use
  Company Number: US-PFIZER INC-2006035652

PATIENT
  Sex: Male
  Weight: 64.5 kg

DRUGS (10)
  1. MARAVIROC [Suspect]
     Indication: HIV INFECTION
     Route: 048
     Dates: start: 20050509, end: 20050830
  2. CLEOCIN [Concomitant]
     Indication: DERMATITIS
     Route: 061
  3. VIDEX EC [Concomitant]
     Indication: HIV TEST POSITIVE
     Route: 065
     Dates: start: 20060314
  4. ADVAIR DISKUS 100/50 [Concomitant]
     Indication: ASTHMA
     Dosage: ONE INHALATION
     Route: 065
     Dates: start: 20011001
  5. DIFLUCAN [Concomitant]
     Indication: ANTIFUNGAL PROPHYLAXIS
     Route: 065
  6. RETROVIR [Concomitant]
     Indication: HIV INFECTION
     Route: 065
     Dates: start: 20050504
  7. MONTELUKAST SODIUM [Concomitant]
     Indication: ASTHMA
     Route: 048
     Dates: start: 20000902
  8. BACTRIM DS [Concomitant]
     Indication: ANTIFUNGAL PROPHYLAXIS
     Dosage: 1 TAB
     Route: 048
     Dates: start: 20000904
  9. EPZICOM [Concomitant]
     Indication: HIV INFECTION
     Dosage: 1 TAB
     Route: 065
     Dates: start: 20050418
  10. REYATAZ [Concomitant]
     Indication: HIV INFECTION
     Route: 065
     Dates: start: 20050504

REACTIONS (1)
  - URINARY TRACT INFECTION [None]
